FAERS Safety Report 18590357 (Version 6)
Quarter: 2021Q2

REPORT INFORMATION
  Report Type: Spontaneous
  Country: US (occurrence: US)
  Receive Date: 20201208
  Receipt Date: 20210405
  Transmission Date: 20210717
  Serious: Yes (Other)
  Sender: FDA-Public Use
  Company Number: NVSC2020US326793

PATIENT
  Sex: Female

DRUGS (2)
  1. ZOFRAN [Suspect]
     Active Substance: ONDANSETRON HYDROCHLORIDE
     Indication: PRODUCT USED FOR UNKNOWN INDICATION
     Dosage: 4 MG, UNK
     Route: 048
     Dates: start: 20140414, end: 201405
  2. ONDANSETRON [Suspect]
     Active Substance: ONDANSETRON
     Indication: MORNING SICKNESS
     Dosage: 4 MG, PRN
     Route: 065
     Dates: start: 20140414, end: 201405

REACTIONS (8)
  - Maternal exposure during pregnancy [Unknown]
  - Injury [Unknown]
  - Complication of pregnancy [Unknown]
  - Polyhydramnios [Unknown]
  - Anxiety [Unknown]
  - Perineal injury [Unknown]
  - Emotional distress [Unknown]
  - Product use issue [Unknown]
